FAERS Safety Report 7448141 (Version 5)
Quarter: 2013Q4

REPORT INFORMATION
  Report Type: Spontaneous
  Country: US (occurrence: US)
  Receive Date: 20100630
  Receipt Date: 20131101
  Transmission Date: 20140711
  Serious: Yes (Hospitalization)
  Sender: FDA-Public Use
  Company Number: US-BAYER-201026232NA

PATIENT
  Age: 21 Year
  Sex: Female
  Weight: 86.36 kg

DRUGS (6)
  1. YAZ [Suspect]
     Indication: CONTRACEPTION
     Dosage: UNK UNK, UNK
     Route: 048
     Dates: start: 200803, end: 200911
  2. IBUPROFEN [Concomitant]
     Dosage: UNK UNK, PRN
     Dates: start: 2006, end: 2010
  3. OMEPRAZOLE [Concomitant]
     Dosage: 20 MG, UNK
  4. PROMETHAZINE HYDROCHLORIDE [Concomitant]
     Dosage: 25 MG, UNK
  5. PROTONIX [Concomitant]
  6. ZOFRAN [Concomitant]

REACTIONS (9)
  - Cholecystitis chronic [None]
  - Cholelithiasis [None]
  - Nausea [None]
  - Vomiting [None]
  - Abdominal pain upper [None]
  - Chromaturia [None]
  - Pain [None]
  - Anhedonia [None]
  - Emotional distress [None]
